FAERS Safety Report 10571595 (Version 1)
Quarter: 2014Q4

REPORT INFORMATION
  Report Type: Spontaneous
  Country: TR (occurrence: TR)
  Receive Date: 20141107
  Receipt Date: 20141107
  Transmission Date: 20150529
  Serious: Yes (Death, Hospitalization)
  Sender: FDA-Public Use
  Company Number: TR-MYLANLABS-2014M1009445

PATIENT

DRUGS (1)
  1. LANSOPRAZOLE. [Suspect]
     Active Substance: LANSOPRAZOLE
     Indication: DYSPEPSIA
     Dosage: 30 MG
     Route: 065

REACTIONS (11)
  - Anaphylactic reaction [Fatal]
  - Brain oedema [None]
  - Hepatic enzyme increased [None]
  - Cardiac arrest [Fatal]
  - Hypoxia [Fatal]
  - Metabolic acidosis [None]
  - Oliguria [None]
  - Lactic acidosis [None]
  - Respiratory arrest [Fatal]
  - Multi-organ failure [Fatal]
  - Loss of consciousness [None]
